FAERS Safety Report 17843331 (Version 1)
Quarter: 2020Q2

REPORT INFORMATION
  Report Type: Spontaneous
  Country: FR (occurrence: FR)
  Receive Date: 20200530
  Receipt Date: 20200530
  Transmission Date: 20200714
  Serious: Yes (Hospitalization)
  Sender: FDA-Public Use
  Company Number: FR-ACCORD-183692

PATIENT
  Age: 77 Year
  Sex: Female

DRUGS (3)
  1. FLUOROURACIL. [Suspect]
     Active Substance: FLUOROURACIL
     Indication: ANAL CANCER METASTATIC
     Route: 042
     Dates: start: 20200408, end: 20200408
  2. FOLINIC ACID [Concomitant]
     Active Substance: LEUCOVORIN
     Indication: ANAL CANCER METASTATIC
     Route: 042
     Dates: start: 20200408, end: 20200408
  3. OXALIPLATIN. [Suspect]
     Active Substance: OXALIPLATIN
     Indication: ANAL CANCER METASTATIC
     Route: 042
     Dates: start: 20200408, end: 20200408

REACTIONS (2)
  - Diarrhoea [Recovered/Resolved]
  - Pancytopenia [Recovered/Resolved]

NARRATIVE: CASE EVENT DATE: 202004
